FAERS Safety Report 22290505 (Version 1)
Quarter: 2023Q2

REPORT INFORMATION
  Report Type: Spontaneous
  Country: DE (occurrence: DE)
  Receive Date: 20230505
  Receipt Date: 20230505
  Transmission Date: 20230721
  Serious: Yes (Death, Other)
  Sender: FDA-Public Use
  Company Number: DE-009507513-2305DEU001513

PATIENT
  Age: 48 Year

DRUGS (1)
  1. PEMBROLIZUMAB [Suspect]
     Active Substance: PEMBROLIZUMAB
     Indication: Pancreatic carcinoma metastatic
     Dosage: PATIENT RECEIVED 2 CYCLES

REACTIONS (4)
  - Death [Fatal]
  - Pneumonia [Unknown]
  - Sepsis [Unknown]
  - Product use in unapproved indication [Unknown]
